FAERS Safety Report 25938020 (Version 1)
Quarter: 2025Q4

REPORT INFORMATION
  Report Type: Spontaneous
  Country: KR (occurrence: KR)
  Receive Date: 20251018
  Receipt Date: 20251018
  Transmission Date: 20260118
  Serious: Yes (Death, Other)
  Sender: AMGEN
  Company Number: KR-AMGEN-KORSP2025207504

PATIENT

DRUGS (2)
  1. BLINATUMOMAB [Suspect]
     Active Substance: BLINATUMOMAB
     Indication: B-cell type acute leukaemia
     Dosage: 9 MICROGRAM, QD, IN WEEK 1 OF CYCLE 1
     Route: 040
  2. BLINATUMOMAB [Suspect]
     Active Substance: BLINATUMOMAB
     Dosage: 28 MICROGRAM, QD
     Route: 040

REACTIONS (17)
  - Death [Fatal]
  - Cerebral haemorrhage [Fatal]
  - Allogenic stem cell transplantation [Fatal]
  - Gastrointestinal haemorrhage [Fatal]
  - B-cell type acute leukaemia [Fatal]
  - Septic shock [Fatal]
  - Pneumonia [Fatal]
  - Acute lymphocytic leukaemia refractory [Unknown]
  - Lactic acidosis [Unknown]
  - Cholangitis [Unknown]
  - Neurotoxicity [Unknown]
  - Sepsis [Unknown]
  - Therapy cessation [Unknown]
  - Adverse event [Unknown]
  - Therapy non-responder [Unknown]
  - Therapy partial responder [Unknown]
  - Infection [Unknown]
